FAERS Safety Report 4641752-5 (Version None)
Quarter: 2005Q2

REPORT INFORMATION
  Report Type: 
  Country: None (occurrence: None)
  Receive Date: 20050421
  Receipt Date: 20050407
  Transmission Date: 20051028
  Serious: Yes (Hospitalization, Other)
  Sender: FDA-Public Use
  Company Number: 2005056765

PATIENT
  Age: 31 Year
  Sex: Male

DRUGS (5)
  1. CELEBREX [Suspect]
     Indication: BACK INJURY
     Dates: start: 20000101
  2. BEXTRA [Suspect]
     Indication: BACK INJURY
     Dosage: (1 IN 1 D), ORAL
     Route: 048
     Dates: start: 20030101
  3. ROFECOXIB [Suspect]
     Indication: ILL-DEFINED DISORDER
  4. VICODIN [Concomitant]
  5. OXYCODONE HYDROCHLORIDE AND ACETAMINOPHEN [Concomitant]

REACTIONS (4)
  - DYSPNOEA [None]
  - PRURITUS GENERALISED [None]
  - SURGERY [None]
  - WEIGHT FLUCTUATION [None]
